FAERS Safety Report 15366443 (Version 5)
Quarter: 2019Q3

REPORT INFORMATION
  Report Type: Spontaneous
  Country: US (occurrence: US)
  Receive Date: 20180910
  Receipt Date: 20190823
  Transmission Date: 20191004
  Serious: Yes (Death, Hospitalization, Other)
  Sender: FDA-Public Use
  Company Number: US-SA-2018SA252326

PATIENT
  Age: 81 Year
  Sex: Female

DRUGS (11)
  1. HYDRALAZINE [Concomitant]
     Active Substance: HYDRALAZINE HYDROCHLORIDE
  2. RANITIDINE. [Concomitant]
     Active Substance: RANITIDINE
  3. VITAMIN D3 [Concomitant]
     Active Substance: CHOLECALCIFEROL
  4. NOVOLOG [Concomitant]
     Active Substance: INSULIN ASPART
  5. ELIQUIS [Concomitant]
     Active Substance: APIXABAN
  6. VITAMINS NOS [Concomitant]
     Active Substance: VITAMINS
  7. PRALUENT [Suspect]
     Active Substance: ALIROCUMAB
     Indication: ARTERIOSCLEROSIS
     Dosage: 75 MG, QOW
     Route: 058
     Dates: start: 20171102
  8. DASETTA 1/35 [Concomitant]
     Active Substance: ETHINYL ESTRADIOL\NORETHINDRONE
  9. AMIODARONE HYDROCHLORIDE;GLUCOSE [Concomitant]
     Dosage: IN DEXTROSE
  10. DICYCLOMINE [DICYCLOVERINE] [Concomitant]
  11. ULORIC [Concomitant]
     Active Substance: FEBUXOSTAT

REACTIONS (5)
  - Glaucoma surgery [Unknown]
  - Death [Fatal]
  - Renal failure [Unknown]
  - Blood phosphorus increased [Unknown]
  - Malaise [Unknown]

NARRATIVE: CASE EVENT DATE: 201809
